APPROVED DRUG PRODUCT: ICOSAPENT ETHYL
Active Ingredient: ICOSAPENT ETHYL
Strength: 1GM
Dosage Form/Route: CAPSULE;ORAL
Application: A219156 | Product #001 | TE Code: AB
Applicant: XIAMEN LP PHARMACUETICAL CO LTD
Approved: Aug 6, 2025 | RLD: No | RS: No | Type: RX